FAERS Safety Report 5296112-3 (Version None)
Quarter: 2007Q2

REPORT INFORMATION
  Report Type: 
  Country: None (occurrence: None)
  Receive Date: 20070413
  Receipt Date: 20070402
  Transmission Date: 20071010
  Serious: Yes (Hospitalization)
  Sender: FDA-Public Use
  Company Number: PHBS2007IT05842

PATIENT
  Age: 86 Year
  Sex: Male

DRUGS (1)
  1. VOLTAREN [Suspect]
     Indication: BACK PAIN
     Dosage: 75 MG, PRN
     Route: 030
     Dates: start: 20061223, end: 20070123

REACTIONS (3)
  - DIVERTICULITIS [None]
  - GASTROINTESTINAL HAEMORRHAGE [None]
  - MELAENA [None]
